FAERS Safety Report 11511503 (Version 2)
Quarter: 2015Q3

REPORT INFORMATION
  Report Type: Report from Study
  Country: US (occurrence: US)
  Receive Date: 20150915
  Receipt Date: 20150928
  Transmission Date: 20151125
  Serious: Yes (Death, Other)
  Sender: FDA-Public Use
  Company Number: US-GILEAD-2015-0171855

PATIENT
  Age: 55 Year
  Sex: Male
  Weight: 99.7 kg

DRUGS (6)
  1. LEDIPASVIR/SOFOSBUVIR [Suspect]
     Active Substance: LEDIPASVIR\SOFOSBUVIR
     Indication: CHRONIC HEPATITIS C
     Dosage: 1 DF, UNK
     Route: 048
     Dates: start: 20150419, end: 20150517
  2. PROAIR HFA [Concomitant]
     Active Substance: ALBUTEROL SULFATE
  3. SPIRIVA [Concomitant]
     Active Substance: TIOTROPIUM BROMIDE MONOHYDRATE
  4. SPIRONOLACTONE. [Interacting]
     Active Substance: SPIRONOLACTONE
     Indication: FLUID RETENTION
     Dosage: UNK
     Route: 048
  5. MIRALAX [Concomitant]
     Active Substance: POLYETHYLENE GLYCOL 3350
     Indication: CONSTIPATION
  6. METFORMIN [Concomitant]
     Active Substance: METFORMIN HYDROCHLORIDE
     Indication: DIABETES MELLITUS

REACTIONS (5)
  - Pulmonary oedema [Fatal]
  - Inhibitory drug interaction [Fatal]
  - Swelling [Unknown]
  - Myocardial infarction [Fatal]
  - Fluid retention [Fatal]

NARRATIVE: CASE EVENT DATE: 2015
